FAERS Safety Report 13298257 (Version 1)
Quarter: 2017Q1

REPORT INFORMATION
  Report Type: Spontaneous
  Country: US (occurrence: US)
  Receive Date: 20170306
  Receipt Date: 20170306
  Transmission Date: 20170428
  Serious: No
  Sender: FDA-Public Use
  Company Number: US-TEVA-719435ACC

PATIENT
  Age: 53 Year
  Sex: Male
  Weight: 74.83 kg

DRUGS (1)
  1. MAXIMUM STRENGTH MUCUS-DM [Suspect]
     Active Substance: DEXTROMETHORPHAN\GUAIFENESIN
     Indication: PRODUCTIVE COUGH
     Dosage: GUAIFENESIN/DEXTROMETHORPHAN HYDROBROMIDE : 1200/60 MG
     Route: 048
     Dates: start: 20161018, end: 20161025

REACTIONS (2)
  - Drug ineffective [Unknown]
  - Incorrect drug administration duration [Unknown]

NARRATIVE: CASE EVENT DATE: 20161018
